FAERS Safety Report 6568995-8 (Version None)
Quarter: 2010Q1

REPORT INFORMATION
  Report Type: 
  Country: None (occurrence: None)
  Receive Date: 20100203
  Receipt Date: 20100129
  Transmission Date: 20100710
  Serious: Yes (Other)
  Sender: FDA-Public Use
  Company Number: GXKR2010DE00792

PATIENT
  Sex: Female
  Weight: 73 kg

DRUGS (1)
  1. BISOPROLOL PLUS 1A PHARMA (NGX) [Suspect]
     Indication: HYPERTENSION
     Dosage: 0.5 DF, BID
     Route: 048
     Dates: start: 20090901, end: 20100101

REACTIONS (4)
  - ASTHENIA [None]
  - FATIGUE [None]
  - HYPOGLYCAEMIA [None]
  - OROPHARYNGEAL PAIN [None]
